FAERS Safety Report 24363042 (Version 4)
Quarter: 2024Q4

REPORT INFORMATION
  Report Type: Report from Study
  Country: US (occurrence: US)
  Receive Date: 20240925
  Receipt Date: 20241106
  Transmission Date: 20250115
  Serious: No
  Sender: SUNOVION
  Company Number: US-SUMITOMO PHARMA SWITZERLAND GMBH-2024SPA002455

PATIENT

DRUGS (18)
  1. ORGOVYX [Suspect]
     Active Substance: RELUGOLIX
     Indication: Prostate cancer
     Dosage: 360 MG, SINGLE
     Route: 048
     Dates: start: 20240823, end: 20240823
  2. ORGOVYX [Suspect]
     Active Substance: RELUGOLIX
     Dosage: 120 MG, QD
     Route: 048
     Dates: start: 20240824
  3. BENADRYL [Concomitant]
     Active Substance: DIPHENHYDRAMINE HYDROCHLORIDE
     Dosage: UNK
     Route: 065
  4. Black seed oil [Concomitant]
     Dosage: UNK
     Route: 065
  5. Coq10 plus [Concomitant]
     Dosage: UNK
     Route: 065
  6. IVERMECTIN [Concomitant]
     Active Substance: IVERMECTIN
     Dosage: UNK
     Route: 065
  7. Glucosamine + chondoritin [Concomitant]
     Dosage: UNK
     Route: 065
  8. LORATADINE [Concomitant]
     Active Substance: LORATADINE
     Dosage: UNK
     Route: 065
  9. MAGNESIUM OXIDE [Concomitant]
     Active Substance: MAGNESIUM OXIDE
     Dosage: UNK
     Route: 065
  10. Mct oil [Concomitant]
     Dosage: UNK
     Route: 065
  11. MEBENDAZOLE [Concomitant]
     Active Substance: MEBENDAZOLE
     Dosage: UNK
     Route: 065
  12. DIETARY SUPPLEMENT\HERBALS\MILK THISTLE [Concomitant]
     Active Substance: MILK THISTLE
     Dosage: UNK
     Route: 065
  13. VITAMINS [Concomitant]
     Active Substance: VITAMINS
     Dosage: UNK
     Route: 065
  14. Turmeric complex [Concomitant]
     Dosage: UNK
     Route: 065
  15. QUERCETIN [Concomitant]
     Active Substance: QUERCETIN
     Dosage: UNK
     Route: 065
  16. Turkey tail [Concomitant]
     Dosage: UNK
     Route: 065
  17. VITAMIN C [Concomitant]
     Active Substance: ASCORBIC ACID
     Dosage: UNK
     Route: 065
  18. COLLAGEN HYDROLYSATE [Concomitant]
     Dosage: UNK
     Route: 065

REACTIONS (7)
  - Nail disorder [Unknown]
  - Pollakiuria [Unknown]
  - Onychoclasis [Unknown]
  - Psoriasis [Unknown]
  - Blood glucose increased [Unknown]
  - Weight increased [Unknown]
  - Hot flush [Unknown]
